FAERS Safety Report 9771258 (Version 2)
Quarter: 2013Q4

REPORT INFORMATION
  Report Type: Spontaneous
  Country: US (occurrence: US)
  Receive Date: 20131218
  Receipt Date: 20131218
  Transmission Date: 20140711
  Serious: Yes (Other)
  Sender: FDA-Public Use
  Company Number: US-RB-058021-13

PATIENT
  Age: 29 Year
  Sex: Female
  Weight: 71 kg

DRUGS (4)
  1. SUBOXONE FILM [Suspect]
     Indication: DRUG DEPENDENCE
     Dosage: SUBOXONE FILM
     Route: 060
     Dates: start: 20130110, end: 20130424
  2. SUBUTEX [Suspect]
     Indication: DRUG DEPENDENCE
     Route: 048
     Dates: start: 20130424
  3. WELLBUTRIN [Concomitant]
     Indication: ANXIETY
     Dosage: DOSING REGIMEN UNKNOWN; TAKING 1 TABLET DAILY
     Route: 048
     Dates: start: 20130304, end: 201305
  4. WELLBUTRIN [Concomitant]
     Indication: ANXIETY
     Dosage: DOSING REGIMEN UNKNOWN; TAKING 1 TABLET DAILY
     Route: 048
     Dates: start: 20130304, end: 201305

REACTIONS (5)
  - Drug abuse [Recovered/Resolved]
  - Wrong technique in drug usage process [Recovered/Resolved]
  - Maternal exposure during pregnancy [Recovered/Resolved]
  - Foetal hypokinesia [Recovered/Resolved]
  - Incorrect route of drug administration [Not Recovered/Not Resolved]
